FAERS Safety Report 22525268 (Version 1)
Quarter: 2023Q2

REPORT INFORMATION
  Report Type: Spontaneous
  Country: US (occurrence: US)
  Receive Date: 20230606
  Receipt Date: 20230606
  Transmission Date: 20230722
  Serious: Yes (Death, Other)
  Sender: FDA-Public Use
  Company Number: US-ALXN-A202307418

PATIENT
  Age: 66 Year
  Sex: Male

DRUGS (1)
  1. SOLIRIS [Suspect]
     Active Substance: ECULIZUMAB
     Indication: Atypical haemolytic uraemic syndrome
     Dosage: UNK
     Route: 065

REACTIONS (8)
  - Coxsackie viral infection [Fatal]
  - Pancreatitis necrotising [Unknown]
  - Pancreatic haemorrhage [Unknown]
  - Pulmonary embolism [Unknown]
  - Cerebral infarction [Unknown]
  - Brain stem infarction [Unknown]
  - Pulmonary congestion [Unknown]
  - Pancreatic abscess [Unknown]
